FAERS Safety Report 8588957-9 (Version None)
Quarter: 2012Q3

REPORT INFORMATION
  Report Type: 
  Country: None (occurrence: None)
  Receive Date: 20120813
  Receipt Date: 20120801
  Transmission Date: 20120928
  Serious: Yes (Death, Hospitalization)
  Sender: FDA-Public Use
  Company Number: US-BAYER-2012-079091

PATIENT
  Age: 54 Year

DRUGS (2)
  1. YAZ [Suspect]
     Dosage: UNK
     Dates: start: 20011201, end: 20020115
  2. YASMIN [Suspect]
     Dosage: UNK
     Dates: start: 20011201, end: 20020115

REACTIONS (1)
  - PULMONARY EMBOLISM [None]
